FAERS Safety Report 12690629 (Version 2)
Quarter: 2016Q3

REPORT INFORMATION
  Report Type: Report from Study
  Country: BR (occurrence: BR)
  Receive Date: 20160826
  Receipt Date: 20160908
  Transmission Date: 20161109
  Serious: Yes (Other)
  Sender: FDA-Public Use
  Company Number: BR-SA-2015SA190769

PATIENT
  Age: 66 Year
  Sex: Female
  Weight: 51.8 kg

DRUGS (2)
  1. KYNAMRO [Suspect]
     Active Substance: MIPOMERSEN SODIUM
     Indication: TYPE IIA HYPERLIPIDAEMIA
     Route: 058
     Dates: start: 20150824
  2. KYNAMRO [Suspect]
     Active Substance: MIPOMERSEN SODIUM
     Indication: TYPE IIA HYPERLIPIDAEMIA
     Route: 058
     Dates: end: 20151228

REACTIONS (8)
  - Hypersensitivity vasculitis [Recovered/Resolved]
  - Purpura [Recovering/Resolving]
  - Injection site pain [Unknown]
  - Injection site erythema [Recovering/Resolving]
  - Purpura [Recovered/Resolved]
  - Influenza like illness [Recovering/Resolving]
  - Injection site pain [Recovering/Resolving]
  - Petechiae [Unknown]

NARRATIVE: CASE EVENT DATE: 20150824
